FAERS Safety Report 6081136-9 (Version None)
Quarter: 2009Q1

REPORT INFORMATION
  Report Type: 
  Country: None (occurrence: None)
  Receive Date: 20090213
  Receipt Date: 20090202
  Transmission Date: 20090719
  Serious: Yes (Hospitalization, Other)
  Sender: FDA-Public Use
  Company Number: 2008AP001034

PATIENT
  Age: 23 Year
  Sex: Female

DRUGS (4)
  1. LAMOTRIGINE [Suspect]
     Dosage: 200 MG; QW
  2. TEGRETOL [Suspect]
     Indication: EPILEPSY
     Dosage: 400 MG; BID PO
     Route: 048
     Dates: start: 20070309, end: 20070720
  3. LEVETIRACETAM [Concomitant]
  4. VALPROIC ACID [Concomitant]

REACTIONS (19)
  - ABDOMINAL PAIN UPPER [None]
  - APHASIA [None]
  - BALANCE DISORDER [None]
  - CONFUSIONAL STATE [None]
  - CONVERSION DISORDER [None]
  - COORDINATION ABNORMAL [None]
  - DIPLOPIA [None]
  - DIZZINESS [None]
  - EPILEPSY [None]
  - EYE MOVEMENT DISORDER [None]
  - EYE ROLLING [None]
  - HALLUCINATION [None]
  - HEADACHE [None]
  - HIRSUTISM [None]
  - MOOD ALTERED [None]
  - MUSCLE SPASMS [None]
  - NAUSEA [None]
  - PHOTOPHOBIA [None]
  - VISION BLURRED [None]
